FAERS Safety Report 5320812-X (Version None)
Quarter: 2007Q2

REPORT INFORMATION
  Report Type: 
  Country: None (occurrence: None)
  Receive Date: 20070502
  Receipt Date: 20070418
  Transmission Date: 20071010
  Serious: Yes (Hospitalization)
  Sender: FDA-Public Use
  Company Number: C-07-0016

PATIENT
  Age: 68 Year
  Sex: Male
  Weight: 63.05 kg

DRUGS (1)
  1. GUAIFENESIN [Suspect]
     Indication: COUGH
     Dosage: 2 TSP/4HRS BY MOUTH
     Route: 048
     Dates: start: 20070320, end: 20070326

REACTIONS (3)
  - FAECALOMA [None]
  - INFECTION [None]
  - OLIGURIA [None]
